FAERS Safety Report 9684266 (Version 1)
Quarter: 2013Q4

REPORT INFORMATION
  Report Type: Spontaneous
  Country: US (occurrence: US)
  Receive Date: 20131112
  Receipt Date: 20131112
  Transmission Date: 20140711
  Serious: No
  Sender: FDA-Public Use
  Company Number: US-FOUGERA-2012FO001390

PATIENT
  Sex: Female

DRUGS (1)
  1. CLOBETASOL PROPIONATE [Suspect]
     Indication: ALOPECIA
     Route: 061

REACTIONS (4)
  - Alopecia [Unknown]
  - Folliculitis [Unknown]
  - Condition aggravated [Unknown]
  - Off label use [Unknown]
